FAERS Safety Report 8822865 (Version 1)
Quarter: 2012Q4

REPORT INFORMATION
  Report Type: 
  Country: US (occurrence: US)
  Receive Date: 20121003
  Receipt Date: 20121003
  Transmission Date: 20130627
  Serious: Yes (Death)
  Sender: FDA-Public Use
  Company Number: US-ENDO PHARMACEUTICALS INC.-OPCR20121910

PATIENT
  Age: 55 None
  Sex: Male
  Weight: 136.2 kg

DRUGS (1)
  1. OPANA ER 40MG [Suspect]
     Indication: PAIN
     Route: 048

REACTIONS (2)
  - Death [Fatal]
  - Drug screen negative [Unknown]
